FAERS Safety Report 7550902-2 (Version None)
Quarter: 2011Q2

REPORT INFORMATION
  Report Type: 
  Country: None (occurrence: None)
  Receive Date: 20110616
  Receipt Date: 20110610
  Transmission Date: 20111010
  Serious: Yes (Disabling, Other)
  Sender: FDA-Public Use
  Company Number: GB-TEVA-286095ISR

PATIENT
  Age: 56 Year
  Sex: Female
  Weight: 63.49 kg

DRUGS (2)
  1. QVAR 40 [Suspect]
     Dates: start: 20110128, end: 20110508
  2. QVAR 40 [Suspect]
     Dates: start: 20110101, end: 20110101

REACTIONS (4)
  - MALAISE [None]
  - PALPITATIONS [None]
  - TREMOR [None]
  - HYPERHIDROSIS [None]
